FAERS Safety Report 21326033 (Version 1)
Quarter: 2022Q3

REPORT INFORMATION
  Report Type: Spontaneous
  Country: BR (occurrence: BR)
  Receive Date: 20220913
  Receipt Date: 20220913
  Transmission Date: 20221027
  Serious: Yes (Death, Other)
  Sender: FDA-Public Use
  Company Number: BR-AUROBINDO-AUR-APL-2022-036747

PATIENT
  Age: 43 Year
  Sex: Male

DRUGS (1)
  1. BELEODAQ [Suspect]
     Active Substance: BELINOSTAT
     Indication: T-cell lymphoma refractory
     Dosage: UNK (THIRD LINE TREATMENT)
     Route: 065

REACTIONS (2)
  - Aspergillus infection [Fatal]
  - Condition aggravated [Fatal]
